FAERS Safety Report 14033715 (Version 1)
Quarter: 2017Q4

REPORT INFORMATION
  Report Type: Spontaneous
  Country: US (occurrence: US)
  Receive Date: 20171003
  Receipt Date: 20171003
  Transmission Date: 20180321
  Serious: Yes (Hospitalization, Other)
  Sender: FDA-Public Use
  Company Number: US-TEVA-811072USA

PATIENT
  Age: 63 Year
  Sex: Male

DRUGS (2)
  1. WARFARIN [Suspect]
     Active Substance: WARFARIN
     Indication: THROMBOSIS PROPHYLAXIS
     Dosage: TOTAL WEEKLY DOSE 102.5MG
     Route: 065
  2. SOFOSBUVIR, VELPATASVIR [Interacting]
     Active Substance: SOFOSBUVIR\VELPATASVIR
     Indication: HEPATITIS C VIRUS TEST POSITIVE
     Dosage: 400MG/100MG 1 TABLET DAILY
     Route: 065

REACTIONS (3)
  - International normalised ratio decreased [Recovered/Resolved]
  - Graft thrombosis [Recovered/Resolved]
  - Drug interaction [Recovered/Resolved]
